FAERS Safety Report 7831007-X (Version None)
Quarter: 2011Q4

REPORT INFORMATION
  Report Type: 
  Country: None (occurrence: None)
  Receive Date: 20111021
  Receipt Date: 20111017
  Transmission Date: 20120403
  Serious: Yes (Other)
  Sender: FDA-Public Use
  Company Number: US-PFIZER INC-2011205990

PATIENT
  Sex: Female
  Weight: 60.771 kg

DRUGS (2)
  1. XALATAN [Suspect]
     Indication: GLAUCOMA
     Dosage: ONE DROP IN EACH EYE ONCE A DAY
     Route: 047
     Dates: start: 20000101
  2. XALATAN [Suspect]
     Indication: INTRAOCULAR PRESSURE INCREASED

REACTIONS (6)
  - INTRAOCULAR PRESSURE INCREASED [None]
  - PRURITUS [None]
  - CATARACT OPERATION [None]
  - FOREIGN BODY SENSATION IN EYES [None]
  - EYE IRRITATION [None]
  - DRY EYE [None]
